FAERS Safety Report 10241939 (Version 1)
Quarter: 2014Q2

REPORT INFORMATION
  Report Type: Spontaneous
  Country: US (occurrence: US)
  Receive Date: 20140617
  Receipt Date: 20140617
  Transmission Date: 20141212
  Serious: No
  Sender: FDA-Public Use
  Company Number: US-PFIZER INC-2014162076

PATIENT
  Age: 58 Year
  Sex: Male

DRUGS (10)
  1. ACICLOVIR [Suspect]
     Dosage: UNK
  2. LIPITOR [Suspect]
     Dosage: UNK
  3. LORAZEPAM [Suspect]
     Dosage: UNK
  4. SONATA [Suspect]
     Dosage: UNK
  5. REYATAZ [Suspect]
     Dosage: UNK
  6. INTELENCE [Suspect]
     Dosage: UNK
  7. KALETRA [Suspect]
     Dosage: UNK
  8. ACIPHEX [Suspect]
     Dosage: UNK
  9. VIREAD [Suspect]
     Dosage: UNK
  10. ANDROGEL [Suspect]
     Dosage: UNK

REACTIONS (1)
  - Drug hypersensitivity [Unknown]
